FAERS Safety Report 11679842 (Version 2)
Quarter: 2015Q4

REPORT INFORMATION
  Report Type: Spontaneous
  Country: US (occurrence: US)
  Receive Date: 20151027
  Receipt Date: 20151104
  Transmission Date: 20160304
  Serious: No
  Sender: FDA-Public Use
  Company Number: US-ELI_LILLY_AND_COMPANY-US200912003684

PATIENT
  Age: 77 Year
  Sex: Female

DRUGS (5)
  1. NIASPAN [Concomitant]
     Active Substance: NIACIN
  2. FORTEO [Suspect]
     Active Substance: TERIPARATIDE
     Dosage: 20 UG, DAILY (1/D)
  3. FORTEO [Suspect]
     Active Substance: TERIPARATIDE
     Dosage: 20 UG, DAILY (1/D)
  4. FORTEO [Suspect]
     Active Substance: TERIPARATIDE
     Dosage: 20 UG, QD
  5. FORTEO [Suspect]
     Active Substance: TERIPARATIDE
     Indication: OSTEOPOROSIS
     Dosage: 20 UG, DAILY (1/D)
     Route: 065
     Dates: start: 20091116

REACTIONS (12)
  - Pruritus generalised [Not Recovered/Not Resolved]
  - Viral infection [Recovered/Resolved]
  - Discomfort [Unknown]
  - Abdominal tenderness [Unknown]
  - Foot fracture [Unknown]
  - Nausea [Unknown]
  - Cataract [Unknown]
  - Injection site bruising [Recovered/Resolved]
  - Fatigue [Unknown]
  - Injection site bruising [Not Recovered/Not Resolved]
  - Feeling abnormal [Unknown]
  - Injection site discomfort [Unknown]

NARRATIVE: CASE EVENT DATE: 2009
